FAERS Safety Report 20485475 (Version 1)
Quarter: 2022Q1

REPORT INFORMATION
  Report Type: Other
  Country: KR (occurrence: None)
  Receive Date: 20220217
  Receipt Date: 20220217
  Transmission Date: 20220423
  Serious: Yes (Other)
  Sender: FDA-Public Use
  Company Number: KR-ROCHE-2997164

PATIENT
  Age: 69 Year
  Sex: Male
  Weight: 63.5 kg

DRUGS (16)
  1. ATEZOLIZUMAB [Suspect]
     Active Substance: ATEZOLIZUMAB
     Indication: Hepatocellular carcinoma
     Dosage: DATE OF TREATMENT 26/NOV/2021, 21/DEC/2021
     Route: 041
     Dates: start: 20211105
  2. BEVACIZUMAB [Suspect]
     Active Substance: BEVACIZUMAB
     Indication: Hepatocellular carcinoma
     Dosage: DATE OF TREATMENT 26/NOV/2021
     Route: 042
     Dates: start: 20211105
  3. ASPIRIN [Concomitant]
     Active Substance: ASPIRIN
  4. OLMESARTAN MEDOXOMIL [Concomitant]
     Active Substance: OLMESARTAN MEDOXOMIL
  5. BISOPROLOL FUMARATE [Concomitant]
     Active Substance: BISOPROLOL FUMARATE
  6. AMLODIPINE CAMSYLATE [Concomitant]
     Active Substance: AMLODIPINE CAMSYLATE
  7. LIVALO [Concomitant]
     Active Substance: PITAVASTATIN CALCIUM
  8. URSODIOL [Concomitant]
     Active Substance: URSODIOL
  9. VENITOL [Concomitant]
  10. CREON [Concomitant]
     Active Substance: PANCRELIPASE AMYLASE\PANCRELIPASE LIPASE\PANCRELIPASE PROTEASE
  11. ULTRACET ER SEMI [Concomitant]
  12. FURIX (SOUTH KOREA) [Concomitant]
  13. ALDACTONE [Concomitant]
     Active Substance: SPIRONOLACTONE
  14. MAGMIL S [Concomitant]
  15. OXYCODONE HYDROCHLORIDE [Concomitant]
     Active Substance: OXYCODONE HYDROCHLORIDE
  16. FENTANYL [Concomitant]
     Active Substance: FENTANYL
     Indication: Cancer pain
     Dosage: PATCH 25MCG/H 8.4 CM
     Dates: start: 20211105, end: 20211221

REACTIONS (3)
  - Duodenal ulcer [Recovering/Resolving]
  - Haematochezia [Recovered/Resolved]
  - Decreased appetite [Recovering/Resolving]

NARRATIVE: CASE EVENT DATE: 20211126
